FAERS Safety Report 6420007-2 (Version None)
Quarter: 2009Q4

REPORT INFORMATION
  Report Type: 
  Country: None (occurrence: None)
  Receive Date: 20091029
  Receipt Date: 20091026
  Transmission Date: 20100525
  Serious: Yes (Other)
  Sender: FDA-Public Use
  Company Number: US-TEVA-209955USA

PATIENT
  Sex: Female

DRUGS (1)
  1. AMPHETAMINES [Suspect]
     Dates: start: 20050701

REACTIONS (11)
  - APHASIA [None]
  - BALANCE DISORDER [None]
  - DEPRESSION [None]
  - DIZZINESS [None]
  - FALL [None]
  - FATIGUE [None]
  - HEADACHE [None]
  - LETHARGY [None]
  - MENINGIOMA [None]
  - PALLOR [None]
  - SPEECH DISORDER [None]
